FAERS Safety Report 6663953-7 (Version None)
Quarter: 2010Q2

REPORT INFORMATION
  Report Type: 
  Country: None (occurrence: None)
  Receive Date: 20100401
  Receipt Date: 20100325
  Transmission Date: 20101027
  Serious: Yes (Hospitalization)
  Sender: FDA-Public Use
  Company Number: SE-BAXTER-2010BH007967

PATIENT
  Sex: Male

DRUGS (5)
  1. GAMMAGARD LIQUID [Suspect]
     Indication: POLYARTERITIS NODOSA
     Route: 042
     Dates: start: 20091130, end: 20091201
  2. GAMMAGARD LIQUID [Suspect]
     Indication: OFF LABEL USE
     Route: 042
     Dates: start: 20091130, end: 20091201
  3. PULMICORT [Concomitant]
     Route: 055
  4. NORVASK [Concomitant]
     Route: 048
  5. RHINOCORT [Concomitant]
     Route: 045

REACTIONS (1)
  - MENINGITIS [None]
